FAERS Safety Report 21562189 (Version 1)
Quarter: 2022Q4

REPORT INFORMATION
  Report Type: Spontaneous
  Country: US (occurrence: US)
  Receive Date: 20221107
  Receipt Date: 20221107
  Transmission Date: 20230112
  Serious: Yes (Other)
  Sender: FDA-Public Use
  Company Number: US-GLAXOSMITHKLINE-US2022157022

PATIENT

DRUGS (2)
  1. TRELEGY ELLIPTA [Suspect]
     Active Substance: FLUTICASONE FUROATE\UMECLIDINIUM BROMIDE\VILANTEROL TRIFENATATE
     Indication: Chronic obstructive pulmonary disease
     Dosage: 1 PUFF(S), QD (TRELEGY ELLIPTA 100/62.5/25 MCGONE INHALATION PER DAY)
     Dates: start: 202110, end: 202208
  2. VENTOLIN HFA [Concomitant]
     Active Substance: ALBUTEROL SULFATE
     Indication: Chronic obstructive pulmonary disease
     Dosage: UNK TAKES AS PER NEEDED

REACTIONS (4)
  - Oropharyngeal blistering [Unknown]
  - Candida infection [Recovered/Resolved]
  - Oral mucosal blistering [Unknown]
  - Dysphagia [Unknown]

NARRATIVE: CASE EVENT DATE: 20211001
